FAERS Safety Report 5871587-7 (Version None)
Quarter: 2008Q3

REPORT INFORMATION
  Report Type: 
  Country: None (occurrence: None)
  Receive Date: 20080905
  Receipt Date: 20080602
  Transmission Date: 20090109
  Serious: No
  Sender: FDA-Public Use
  Company Number: A0732011A

PATIENT
  Sex: Female

DRUGS (5)
  1. REQUIP [Suspect]
     Indication: RESTLESS LEGS SYNDROME
     Route: 048
     Dates: start: 20080101, end: 20080101
  2. LYRICA [Concomitant]
  3. AVALIDE [Concomitant]
  4. ZYRTEC [Concomitant]
  5. LIPITOR [Concomitant]

REACTIONS (3)
  - HYPERHIDROSIS [None]
  - MIDDLE INSOMNIA [None]
  - VOMITING [None]
